FAERS Safety Report 15536599 (Version 1)
Quarter: 2018Q4

REPORT INFORMATION
  Report Type: Spontaneous
  Country: US (occurrence: US)
  Receive Date: 20181016
  Receipt Date: 20181016
  Transmission Date: 20190205
  Serious: No
  Sender: FDA-Public Use
  Company Number: None

PATIENT
  Age: 6 Year
  Weight: 21.6 kg

DRUGS (4)
  1. VINCRISTINE SULFATE 3.75MG [Concomitant]
  2. PREDNISONE 450 MG [Concomitant]
  3. MERCAPTOPURINE (755) [Suspect]
     Active Substance: MERCAPTOPURINE
     Dates: end: 20181003
  4. METHOTREXATE 112MG [Concomitant]
     Dates: end: 20181004

REACTIONS (20)
  - Pneumonia [None]
  - Tachycardia [None]
  - Computerised tomogram head abnormal [None]
  - Photophobia [None]
  - Musculoskeletal stiffness [None]
  - Diplopia [None]
  - Cough [None]
  - Ill-defined disorder [None]
  - Hypertension [None]
  - VIth nerve paralysis [None]
  - Neutrophil count decreased [None]
  - Partial seizures [None]
  - Meningitis [None]
  - Haemophilus test positive [None]
  - Extraocular muscle disorder [None]
  - Headache [None]
  - Atelectasis [None]
  - Pyrexia [None]
  - Vomiting [None]
  - CSF pressure increased [None]

NARRATIVE: CASE EVENT DATE: 20181005
